FAERS Safety Report 6825123-9 (Version None)
Quarter: 2010Q3

REPORT INFORMATION
  Report Type: 
  Country: None (occurrence: None)
  Receive Date: 20100708
  Receipt Date: 20061226
  Transmission Date: 20110219
  Serious: No
  Sender: FDA-Public Use
  Company Number: US-PFIZER INC-2007001061

PATIENT
  Sex: Male
  Weight: 97.98 kg

DRUGS (14)
  1. CHANTIX [Suspect]
     Indication: SMOKING CESSATION THERAPY
     Dates: start: 20061219, end: 20061223
  2. ONE-A-DAY [Concomitant]
  3. ACETYLSALICYLIC ACID [Concomitant]
  4. KRONOFED-A [Concomitant]
  5. TRICOR [Concomitant]
  6. FOLTX [Concomitant]
  7. COENZYME Q10 [Concomitant]
  8. ATENOLOL [Concomitant]
  9. LIPITOR [Concomitant]
  10. LISINOPRIL [Concomitant]
  11. PROLIXIN [Concomitant]
  12. CLONAZEPAM [Concomitant]
  13. SPIRIVA [Concomitant]
  14. HYTRIN [Concomitant]

REACTIONS (6)
  - ASTHENIA [None]
  - COUGH [None]
  - INFLUENZA [None]
  - OROPHARYNGEAL PAIN [None]
  - SINUS CONGESTION [None]
  - TINNITUS [None]
